FAERS Safety Report 7372703-0 (Version None)
Quarter: 2011Q1

REPORT INFORMATION
  Report Type: 
  Country: None (occurrence: None)
  Receive Date: 20110324
  Receipt Date: 20110310
  Transmission Date: 20110831
  Serious: Yes (Hospitalization)
  Sender: FDA-Public Use
  Company Number: JP-JNJFOC-20110106341

PATIENT
  Sex: Female
  Weight: 35 kg

DRUGS (9)
  1. REMICADE [Suspect]
     Dosage: 2ND DOSE
     Route: 042
  2. METHOTREXATE [Concomitant]
     Route: 048
  3. ISCOTIN [Concomitant]
     Indication: ANTIBIOTIC PROPHYLAXIS
     Route: 048
  4. REMICADE [Suspect]
     Indication: RHEUMATOID ARTHRITIS
     Route: 042
  5. FOLIAMIN [Concomitant]
     Indication: RHEUMATOID ARTHRITIS
     Route: 048
  6. METHOTREXATE [Concomitant]
     Indication: RHEUMATOID ARTHRITIS
     Route: 048
  7. FOLIAMIN [Concomitant]
     Indication: PROPHYLAXIS
     Route: 048
  8. BREDININ [Concomitant]
     Indication: RHEUMATOID ARTHRITIS
     Route: 048
  9. GASTER D [Concomitant]
     Indication: GASTRITIS
     Route: 048

REACTIONS (2)
  - BRONCHITIS [None]
  - RIB FRACTURE [None]
